FAERS Safety Report 7361644-0 (Version None)
Quarter: 2011Q1

REPORT INFORMATION
  Report Type: 
  Country: None (occurrence: None)
  Receive Date: 20110318
  Receipt Date: 20110308
  Transmission Date: 20110831
  Serious: Yes (Hospitalization, Other)
  Sender: FDA-Public Use
  Company Number: US-JNJFOC-20100602175

PATIENT
  Sex: Male
  Weight: 51.5 kg

DRUGS (8)
  1. PENTASA [Concomitant]
     Route: 048
  2. MESALAMINE [Concomitant]
     Route: 048
  3. MERCAPTOPURINE [Concomitant]
  4. REMICADE [Suspect]
     Dosage: SECOND DOSE
     Route: 042
  5. REMICADE [Suspect]
     Indication: CROHN'S DISEASE
     Route: 042
  6. METRONIDAZOLE [Concomitant]
  7. AMOXICILLIN [Concomitant]
  8. REMICADE [Suspect]
     Dosage: 2ND DOSE
     Route: 042

REACTIONS (2)
  - BACTERIAL INFECTION [None]
  - CROHN'S DISEASE [None]
